FAERS Safety Report 7174874-8 (Version None)
Quarter: 2010Q4

REPORT INFORMATION
  Report Type: 
  Country: None (occurrence: None)
  Receive Date: 20101219
  Receipt Date: 20101214
  Transmission Date: 20110411
  Serious: Yes (Hospitalization, Other)
  Sender: FDA-Public Use
  Company Number: CO-AMGEN-COLSP2010009409

PATIENT

DRUGS (1)
  1. NEULASTIM [Suspect]
     Indication: NEUTROPENIA
     Dosage: 6 MG, Q4WK
     Route: 058
     Dates: start: 20101001, end: 20101001

REACTIONS (2)
  - DEPRESSION [None]
  - PANIC REACTION [None]
